FAERS Safety Report 10173516 (Version 1)
Quarter: 2014Q2

REPORT INFORMATION
  Report Type: Spontaneous
  Country: US (occurrence: US)
  Receive Date: 20140515
  Receipt Date: 20140515
  Transmission Date: 20141212
  Serious: No
  Sender: FDA-Public Use
  Company Number: US-PFIZER INC-2014132809

PATIENT
  Sex: Male

DRUGS (3)
  1. CELEBREX [Suspect]
     Dosage: UNK, 2X/DAY
     Dates: start: 201404
  2. CELEBREX [Suspect]
     Dosage: UNK, DAILY
     Dates: start: 2014, end: 2014
  3. CELEBREX [Suspect]
     Dosage: UNK
     Dates: start: 201405, end: 201405

REACTIONS (5)
  - Gastric disorder [Recovered/Resolved]
  - Nausea [Recovered/Resolved]
  - Asthenia [Recovered/Resolved]
  - Fatigue [Recovered/Resolved]
  - Activities of daily living impaired [Recovered/Resolved]
